FAERS Safety Report 11573801 (Version 1)
Quarter: 2015Q3

REPORT INFORMATION
  Report Type: Spontaneous
  Country: US (occurrence: US)
  Receive Date: 20150929
  Receipt Date: 20150929
  Transmission Date: 20151125
  Serious: Yes (Death)
  Sender: FDA-Public Use
  Company Number: US-ACTELION-A-NJ2015-124543

PATIENT
  Age: 52 Year
  Sex: Male

DRUGS (1)
  1. OPSUMIT [Suspect]
     Active Substance: MACITENTAN
     Indication: CARDIOMYOPATHY
     Dosage: 10 MG, QD
     Route: 048
     Dates: end: 20150918

REACTIONS (1)
  - Death [Fatal]

NARRATIVE: CASE EVENT DATE: 20150918
